FAERS Safety Report 6998059-0 (Version None)
Quarter: 2010Q3

REPORT INFORMATION
  Report Type: 
  Country: None (occurrence: None)
  Receive Date: 20100920
  Receipt Date: 20070711
  Transmission Date: 20110219
  Serious: Yes (Other)
  Sender: FDA-Public Use
  Company Number: US-ASTRAZENECA-2006UW25641

PATIENT
  Age: 29 Year
  Sex: Male
  Weight: 158.8 kg

DRUGS (16)
  1. SEROQUEL [Suspect]
     Dosage: 300 MG EVERY NIGHT, 300 MG THREE AT BEDTIME
     Route: 048
     Dates: start: 20020801
  2. SEROQUEL [Suspect]
     Route: 048
     Dates: end: 20061213
  3. ABILIFY [Concomitant]
  4. GEODON [Concomitant]
     Dates: start: 20040213
  5. HALDOL [Concomitant]
  6. RISPERDAL [Concomitant]
  7. THORAZINE [Concomitant]
     Dates: start: 20040212
  8. ZYPREXA [Concomitant]
     Dates: start: 20020619
  9. LITHIUM CARBONATE [Concomitant]
     Dosage: 600 MG EVERY MORNING, 300 MG THREE TIMES A DAY
     Dates: start: 20040212
  10. LEXAPRO [Concomitant]
     Dates: start: 20040212
  11. GLUCOVANCE [Concomitant]
     Dates: start: 20040212
  12. LIPITOR [Concomitant]
     Dates: start: 20040212
  13. CELEXA [Concomitant]
     Dates: start: 20020619
  14. GLYBURIDE [Concomitant]
     Dates: start: 20040213
  15. AMBIEN [Concomitant]
     Dates: start: 20020801
  16. LOTENSIN [Concomitant]
     Route: 048
     Dates: start: 20020801

REACTIONS (4)
  - DIABETES MELLITUS [None]
  - DIABETIC COMA [None]
  - DIABETIC KETOACIDOSIS [None]
  - TYPE 2 DIABETES MELLITUS [None]
